FAERS Safety Report 9798732 (Version 1)
Quarter: 2013Q4

REPORT INFORMATION
  Report Type: Spontaneous
  Country: GB (occurrence: None)
  Receive Date: 20131231
  Receipt Date: 20131231
  Transmission Date: 20140711
  Serious: Yes (Other)
  Sender: FDA-Public Use
  Company Number: AUR-APL-2013-10752

PATIENT
  Age: 45 Year
  Sex: Female

DRUGS (3)
  1. AMOXICILLIN (AMOXICILLIN) [Suspect]
     Indication: PRODUCT USED FOR UNKNOWN INDICATION
     Dosage: UNKNOWN
     Dates: start: 20131205
  2. ATENOLOL (ATENOLOL) [Concomitant]
  3. SIMVASTATIN (SIMVASTATIN) [Concomitant]

REACTIONS (2)
  - Rash macular [None]
  - Oedema mouth [None]
